FAERS Safety Report 4486502-0 (Version None)
Quarter: 2004Q4

REPORT INFORMATION
  Report Type: 
  Country: None (occurrence: None)
  Receive Date: 20041027
  Receipt Date: 20041019
  Transmission Date: 20050328
  Serious: Yes (Death)
  Sender: FDA-Public Use
  Company Number: 200417994US

PATIENT
  Age: 69 Year
  Sex: Female

DRUGS (10)
  1. ARAVA [Suspect]
     Indication: ARTHRITIS
     Route: 048
     Dates: start: 20030125
  2. HUMIRA                                  /USA/ [Concomitant]
     Dates: start: 20040504
  3. PREVACID [Concomitant]
  4. SYNTHROID [Concomitant]
     Route: 048
  5. FOSAMAX [Concomitant]
  6. PREDNISONE [Concomitant]
  7. XANAX [Concomitant]
  8. CELEBREX [Concomitant]
     Dosage: DOSE: UNK
  9. TYLENOL W/ CODEINE NO. 3 [Concomitant]
     Dosage: DOSE: UNK
  10. ADVAIR DISKUS 100/50 [Concomitant]
     Indication: INTERSTITIAL LUNG DISEASE
     Dosage: DOSE: UNK

REACTIONS (8)
  - APHASIA [None]
  - BLOOD PRESSURE DIASTOLIC INCREASED [None]
  - COMA [None]
  - CONGENITAL ARTERIAL MALFORMATION [None]
  - HEADACHE [None]
  - INTRAVENTRICULAR HAEMORRHAGE [None]
  - MALFORMATION VENOUS [None]
  - SUBARACHNOID HAEMORRHAGE [None]
